FAERS Safety Report 18943758 (Version 1)
Quarter: 2021Q1

REPORT INFORMATION
  Report Type: Spontaneous
  Country: TH (occurrence: TH)
  Receive Date: 20210226
  Receipt Date: 20210226
  Transmission Date: 20210420
  Serious: Yes (Death, Hospitalization, Other)
  Sender: FDA-Public Use
  Company Number: TH-AUROBINDO-AUR-APL-2021-008268

PATIENT
  Age: 25 Year
  Sex: Female

DRUGS (15)
  1. COLISTIN [Suspect]
     Active Substance: COLISTIN
     Indication: TOXIC SHOCK SYNDROME STREPTOCOCCAL
     Dosage: UNK
     Route: 065
  2. FOSFOMYCIN [Suspect]
     Active Substance: FOSFOMYCIN
     Indication: TOXIC SHOCK SYNDROME STREPTOCOCCAL
     Dosage: UNK
     Route: 065
  3. HYDROCORTISONE. [Concomitant]
     Active Substance: HYDROCORTISONE
     Indication: PRODUCT USED FOR UNKNOWN INDICATION
     Dosage: UNK
     Route: 065
  4. THYROXINE SODIUM [Concomitant]
     Active Substance: LEVOTHYROXINE SODIUM
     Indication: BASEDOW^S DISEASE
     Dosage: UNK
     Route: 065
  5. TENOFOVIR [Concomitant]
     Active Substance: TENOFOVIR
     Indication: HIV INFECTION
     Dosage: UNK
     Route: 065
  6. METRONIDAZOLE. [Suspect]
     Active Substance: METRONIDAZOLE
     Indication: TOXIC SHOCK SYNDROME STREPTOCOCCAL
     Dosage: UNK
     Route: 065
  7. FLUCONAZOLE. [Suspect]
     Active Substance: FLUCONAZOLE
     Indication: TOXIC SHOCK SYNDROME STREPTOCOCCAL
     Dosage: UNK
     Route: 065
  8. MEROPENEM. [Suspect]
     Active Substance: MEROPENEM
     Indication: TOXIC SHOCK SYNDROME STREPTOCOCCAL
     Dosage: UNK
     Route: 065
  9. EMTRICITABINE [Concomitant]
     Active Substance: EMTRICITABINE
     Indication: HIV INFECTION
     Dosage: UNK
     Route: 065
  10. RITONAVIR. [Concomitant]
     Active Substance: RITONAVIR
     Indication: HIV INFECTION
     Dosage: UNK
     Route: 065
  11. CEFTRIAXONE. [Suspect]
     Active Substance: CEFTRIAXONE
     Indication: TOXIC SHOCK SYNDROME STREPTOCOCCAL
     Dosage: UNK
     Route: 065
  12. PIPERACILLIN AND TAZOBACTAM [Suspect]
     Active Substance: PIPERACILLIN SODIUM\TAZOBACTAM SODIUM
     Indication: TOXIC SHOCK SYNDROME STREPTOCOCCAL
     Dosage: UNK
     Route: 065
  13. LINEZOLID. [Suspect]
     Active Substance: LINEZOLID
     Indication: TOXIC SHOCK SYNDROME STREPTOCOCCAL
     Dosage: UNK
     Route: 065
  14. CLINDAMYCIN. [Suspect]
     Active Substance: CLINDAMYCIN
     Indication: TOXIC SHOCK SYNDROME STREPTOCOCCAL
     Dosage: UNK
     Route: 065
  15. ATAZANAVIR. [Concomitant]
     Active Substance: ATAZANAVIR
     Indication: HIV INFECTION
     Dosage: UNK
     Route: 065

REACTIONS (1)
  - Gastrointestinal mucormycosis [Fatal]
